FAERS Safety Report 6819176-1 (Version None)
Quarter: 2010Q3

REPORT INFORMATION
  Report Type: 
  Country: None (occurrence: None)
  Receive Date: 20100707
  Receipt Date: 20100621
  Transmission Date: 20110219
  Serious: Yes (Other)
  Sender: FDA-Public Use
  Company Number: US-BAYER-201026102NA

PATIENT
  Sex: Female

DRUGS (1)
  1. MIRENA [Suspect]
     Indication: PRODUCT USED FOR UNKNOWN INDICATION
     Dosage: IT WAS PLACED FOUR WEEKS PREVIOUS TO REPORT
     Route: 015
     Dates: start: 20100401

REACTIONS (4)
  - DEVICE DISLOCATION [None]
  - PAIN [None]
  - UTERINE SPASM [None]
  - VAGINAL HAEMORRHAGE [None]
